FAERS Safety Report 13989442 (Version 1)
Quarter: 2017Q3

REPORT INFORMATION
  Report Type: Spontaneous
  Country: US (occurrence: US)
  Receive Date: 20170920
  Receipt Date: 20170920
  Transmission Date: 20171128
  Serious: No
  Sender: FDA-Public Use
  Company Number: US-BAUSCH-BL-2017-001615

PATIENT
  Age: 75 Year
  Sex: Female
  Weight: 61 kg

DRUGS (1)
  1. DIAZE GEL [Suspect]
     Active Substance: DIAZEPAM
     Indication: PELVIC FLOOR MUSCLE WEAKNESS
     Route: 065
     Dates: start: 20170116

REACTIONS (3)
  - Bowel movement irregularity [Unknown]
  - Expired product administered [Unknown]
  - Anorectal discomfort [Unknown]

NARRATIVE: CASE EVENT DATE: 20170116
